FAERS Safety Report 9033331 (Version 2)
Quarter: 2013Q1

REPORT INFORMATION
  Report Type: Spontaneous
  Country: US (occurrence: US)
  Receive Date: 20130128
  Receipt Date: 20130306
  Transmission Date: 20140127
  Serious: Yes (Other)
  Sender: FDA-Public Use
  Company Number: US-BAYER-2013-008585

PATIENT
  Age: 63 Year
  Sex: Male

DRUGS (4)
  1. STIVARGA [Suspect]
     Indication: COLORECTAL CANCER METASTATIC
     Dosage: 120 MG DAILY (3 TABLETS DAILY)
     Route: 048
     Dates: start: 20130105
  2. NYSTATIN [Concomitant]
     Indication: CANDIDA INFECTION
     Dosage: UNK
  3. LIDOCAINE [Concomitant]
     Dosage: UNK
  4. COMPAZINE [Concomitant]
     Indication: NAUSEA
     Dosage: UNK

REACTIONS (5)
  - Ascites [None]
  - Chromaturia [None]
  - Rash erythematous [None]
  - Scrotal swelling [None]
  - Local swelling [None]
